FAERS Safety Report 7463556-0 (Version None)
Quarter: 2011Q2

REPORT INFORMATION
  Report Type: 
  Country: None (occurrence: None)
  Receive Date: 20110506
  Receipt Date: 20110427
  Transmission Date: 20111010
  Serious: Yes (Hospitalization)
  Sender: FDA-Public Use
  Company Number: US-WATSON-2011-05846

PATIENT
  Age: 64 Year
  Sex: Male

DRUGS (2)
  1. ANDRODERM [Suspect]
     Dosage: 1 PATCH DAILY
     Route: 062
     Dates: start: 20110316, end: 20110401
  2. ANDRODERM [Suspect]
     Indication: BLOOD TESTOSTERONE DECREASED
     Dosage: 2 PATCHES DAILY
     Route: 062
     Dates: start: 20110425, end: 20110427

REACTIONS (3)
  - PNEUMONIA [None]
  - JOINT SWELLING [None]
  - SINUSITIS [None]
